FAERS Safety Report 9386036 (Version 2)
Quarter: 2013Q4

REPORT INFORMATION
  Report Type: Report from Study
  Country: DE (occurrence: DE)
  Receive Date: 20130705
  Receipt Date: 20131201
  Transmission Date: 20140711
  Serious: Yes (Hospitalization)
  Sender: FDA-Public Use
  Company Number: DE-SANOFI-AVENTIS-2013SA065317

PATIENT
  Age: 76 Year
  Sex: Female
  Weight: 100 kg

DRUGS (8)
  1. MULTAQ [Suspect]
     Indication: ATRIAL FIBRILLATION
     Route: 065
     Dates: start: 201208, end: 201304
  2. BETA BLOCKING AGENTS [Concomitant]
     Dates: start: 201210
  3. VIT K ANTAGONISTS [Concomitant]
     Indication: THROMBOSIS PROPHYLAXIS
     Dates: start: 201210
  4. LISINOPRIL [Concomitant]
     Dosage: STRENGTH: 20 MG
  5. BISOPROLOL [Concomitant]
     Dosage: STRENGTH: 10 MG
  6. HYDROCHLOROTHIAZIDE [Concomitant]
     Dosage: STRENGTH: 12.5 MG
  7. LERCANIDIPINE [Concomitant]
     Dosage: STRENGTH: 10 MG
  8. EUTHYROX [Concomitant]

REACTIONS (2)
  - Atrial fibrillation [Unknown]
  - Diverticulum [Unknown]
